FAERS Safety Report 25790414 (Version 1)
Quarter: 2025Q3

REPORT INFORMATION
  Report Type: Spontaneous
  Country: PH (occurrence: PH)
  Receive Date: 20250911
  Receipt Date: 20250911
  Transmission Date: 20251020
  Serious: Yes (Other)
  Sender: RANBAXY
  Company Number: PH-SUN PHARMACEUTICAL INDUSTRIES LTD-2025R1-525243

PATIENT
  Age: 40 Year
  Sex: Male

DRUGS (1)
  1. ILUMYA [Suspect]
     Active Substance: TILDRAKIZUMAB-ASMN
     Indication: Product used for unknown indication
     Route: 065

REACTIONS (2)
  - Pyrexia [Unknown]
  - Skin exfoliation [Recovered/Resolved]

NARRATIVE: CASE EVENT DATE: 20250829
